FAERS Safety Report 10475211 (Version 2)
Quarter: 2016Q1

REPORT INFORMATION
  Report Type: Report from Study
  Country: US (occurrence: US)
  Receive Date: 20140925
  Receipt Date: 20160311
  Transmission Date: 20160525
  Serious: Yes (Other)
  Sender: FDA-Public Use
  Company Number: US-ROCHE-1460961

PATIENT
  Age: 14 Year
  Sex: Male
  Weight: 59.3 kg

DRUGS (9)
  1. NUTROPIN AQ [Suspect]
     Active Substance: SOMATROPIN
     Indication: BODY HEIGHT BELOW NORMAL
     Route: 058
  2. NUTROPIN AQ [Suspect]
     Active Substance: SOMATROPIN
     Route: 058
  3. RITALIN [Concomitant]
     Active Substance: METHYLPHENIDATE HYDROCHLORIDE
     Route: 048
  4. DIASTAT [Concomitant]
     Active Substance: DIAZEPAM
     Indication: SEIZURE
     Route: 054
  5. NUTROPIN AQ [Suspect]
     Active Substance: SOMATROPIN
     Route: 058
  6. LAMICTAL [Concomitant]
     Active Substance: LAMOTRIGINE
     Indication: EPILEPSY
     Route: 048
  7. LUPRON [Concomitant]
     Active Substance: LEUPROLIDE ACETATE
     Route: 065
  8. HUMATROPE [Concomitant]
     Active Substance: SOMATROPIN
     Route: 065
  9. NUTROPIN AQ [Suspect]
     Active Substance: SOMATROPIN
     Route: 058

REACTIONS (20)
  - Disturbance in attention [Unknown]
  - Pain in extremity [Recovered/Resolved]
  - Encopresis [Unknown]
  - Increased appetite [Unknown]
  - Encephalopathy [Unknown]
  - Back pain [Unknown]
  - Anal incontinence [Unknown]
  - Attention deficit/hyperactivity disorder [Unknown]
  - Visual impairment [Unknown]
  - Nightmare [Unknown]
  - Skin warm [Unknown]
  - Strabismus [Unknown]
  - Enuresis [Unknown]
  - Visual impairment [Unknown]
  - Autism [Unknown]
  - Abnormal behaviour [Unknown]
  - Seizure [Unknown]
  - Headache [Unknown]
  - Upper respiratory tract infection [Recovering/Resolving]
  - Rhinorrhoea [Unknown]

NARRATIVE: CASE EVENT DATE: 201311
